FAERS Safety Report 20508747 (Version 1)
Quarter: 2022Q1

REPORT INFORMATION
  Report Type: Spontaneous
  Country: US (occurrence: None)
  Receive Date: 20220223
  Receipt Date: 20220223
  Transmission Date: 20220423
  Serious: Yes (Other)
  Sender: FDA-Public Use
  Company Number: None

PATIENT
  Age: 79 Year
  Sex: Male
  Weight: 74.25 kg

DRUGS (7)
  1. AMOXICILLIN AND CLAVULANATE POTASSIUM [Suspect]
     Active Substance: AMOXICILLIN\CLAVULANATE POTASSIUM
     Dosage: OTHER QUANTITY : 20 TABLET(S);?FREQUENCY : EVERY 6 HOURS;?
     Route: 048
     Dates: start: 20220218, end: 20220223
  2. LOSARTAN [Concomitant]
     Active Substance: LOSARTAN
  3. GLIMEPIRIDE [Concomitant]
     Active Substance: GLIMEPIRIDE
  4. ASPIRIN [Concomitant]
     Active Substance: ASPIRIN
  5. ATORVASTATIN [Concomitant]
     Active Substance: ATORVASTATIN
  6. Multi Vitamin Supplements for 50+ Age Adults Sentry Seniors [Concomitant]
  7. BP Monitor Digital Medline [Concomitant]

REACTIONS (10)
  - Nasopharyngitis [None]
  - Pyrexia [None]
  - Cough [None]
  - Rhinorrhoea [None]
  - Headache [None]
  - Malaise [None]
  - Weight decreased [None]
  - Liver injury [None]
  - Multi-organ disorder [None]
  - Gastrointestinal sounds abnormal [None]
